FAERS Safety Report 10706756 (Version 1)
Quarter: 2015Q1

REPORT INFORMATION
  Report Type: Spontaneous
  Country: US (occurrence: None)
  Receive Date: 20150109
  Receipt Date: 20150109
  Transmission Date: 20150721
  Serious: Yes (Other)
  Sender: FDA-Public Use
  Company Number: None

PATIENT
  Age: 41 Year
  Sex: Male
  Weight: 79.38 kg

DRUGS (1)
  1. LEVAQUIN [Suspect]
     Active Substance: LEVOFLOXACIN
     Indication: INFLAMMATORY BOWEL DISEASE
     Dosage: ONCE DAILY TAKEN BY MOUTH
     Route: 048
     Dates: start: 20141127, end: 20141207

REACTIONS (1)
  - Clostridium difficile colitis [None]
